FAERS Safety Report 6072108-9 (Version None)
Quarter: 2009Q1

REPORT INFORMATION
  Report Type: 
  Country: None (occurrence: None)
  Receive Date: 20090210
  Receipt Date: 20090206
  Transmission Date: 20090719
  Serious: Yes (Other)
  Sender: FDA-Public Use
  Company Number: JP-ABBOTT-09P-087-0500077-00

PATIENT
  Age: 82 Year
  Sex: Female

DRUGS (6)
  1. KLARICID [Suspect]
     Indication: DRUG USE FOR UNKNOWN INDICATION
     Dosage: NOT REPORTED
  2. ITRACONAZOLE [Suspect]
     Indication: DRUG USE FOR UNKNOWN INDICATION
     Dosage: NOT REPORTED
  3. ITRACONAZOLE [Suspect]
     Dosage: NOT REPORTED
  4. GATIFLOXACIN [Suspect]
     Indication: DRUG USE FOR UNKNOWN INDICATION
     Dosage: NOT REPORTED
  5. PREDNISOLONE [Suspect]
     Indication: DRUG USE FOR UNKNOWN INDICATION
     Route: 048
  6. PREDNISOLONE [Suspect]
     Dosage: NOT REPORTED

REACTIONS (2)
  - GLUCOSE TOLERANCE IMPAIRED [None]
  - HEPATIC FUNCTION ABNORMAL [None]
